FAERS Safety Report 21407356 (Version 2)
Quarter: 2022Q4

REPORT INFORMATION
  Report Type: Spontaneous
  Country: US (occurrence: US)
  Receive Date: 20221004
  Receipt Date: 20221006
  Transmission Date: 20230113
  Serious: Yes (Life-Threatening, Hospitalization, Other)
  Sender: FDA-Public Use
  Company Number: US-PFIZER INC-PV202200068094

PATIENT
  Age: 22 Year
  Sex: Male

DRUGS (1)
  1. METHOTREXATE SODIUM [Suspect]
     Active Substance: METHOTREXATE SODIUM
     Indication: Bone marrow transplant
     Dosage: UNKNOWN

REACTIONS (8)
  - Pharyngeal inflammation [Unknown]
  - Stomatitis [Unknown]
  - Acute respiratory distress syndrome [Unknown]
  - Coagulopathy [Unknown]
  - Acute kidney injury [Unknown]
  - Disease progression [Unknown]
  - Epistaxis [Unknown]
  - Sepsis [Unknown]
